FAERS Safety Report 23170597 (Version 2)
Quarter: 2023Q4

REPORT INFORMATION
  Report Type: Report from Study
  Country: SE (occurrence: SE)
  Receive Date: 20231110
  Receipt Date: 20231116
  Transmission Date: 20240110
  Serious: Yes (Death, Life-Threatening, Hospitalization, Disabling, Other)
  Sender: FDA-Public Use
  Company Number: SE-GENMAB-2023-02097

PATIENT
  Age: 79 Year
  Sex: Female
  Weight: 61.2 kg

DRUGS (19)
  1. EPCORITAMAB [Suspect]
     Active Substance: EPCORITAMAB
     Indication: Follicular lymphoma stage IV
     Dosage: C1D1
     Route: 058
     Dates: start: 20210322, end: 20210322
  2. EPCORITAMAB [Suspect]
     Active Substance: EPCORITAMAB
     Dosage: C1D8
     Route: 058
     Dates: start: 20210329, end: 20210329
  3. EPCORITAMAB [Suspect]
     Active Substance: EPCORITAMAB
     Dosage: C1D15-C3D22
     Route: 058
     Dates: start: 20210406, end: 20210608
  4. EPCORITAMAB [Suspect]
     Active Substance: EPCORITAMAB
     Dosage: C4D1-C9D15
     Route: 058
     Dates: start: 20210615, end: 20211116
  5. EPCORITAMAB [Suspect]
     Active Substance: EPCORITAMAB
     Dosage: C10D1-C25D1
     Route: 058
     Dates: start: 20211130, end: 20230124
  6. RITUXIMAB [Suspect]
     Active Substance: RITUXIMAB
     Indication: Follicular lymphoma stage IV
     Dosage: C1D1-C1D22
     Route: 042
     Dates: start: 20210322, end: 20210413
  7. RITUXIMAB [Suspect]
     Active Substance: RITUXIMAB
     Dosage: C2D1-C5D1
     Route: 042
     Dates: start: 20210420, end: 20210713
  8. LENALIDOMIDE [Suspect]
     Active Substance: LENALIDOMIDE
     Indication: Follicular lymphoma stage IV
     Dosage: CYCLE 1
     Route: 048
     Dates: start: 20210322, end: 20210411
  9. LENALIDOMIDE [Suspect]
     Active Substance: LENALIDOMIDE
     Dosage: CYCLE 2
     Route: 048
     Dates: start: 20210420, end: 20210510
  10. LENALIDOMIDE [Suspect]
     Active Substance: LENALIDOMIDE
     Dosage: CYCLE 3
     Route: 048
     Dates: start: 20210518, end: 20210531
  11. LENALIDOMIDE [Suspect]
     Active Substance: LENALIDOMIDE
     Dosage: CYCLE 4
     Route: 048
     Dates: start: 20210615, end: 20210705
  12. LENALIDOMIDE [Suspect]
     Active Substance: LENALIDOMIDE
     Dosage: CYCLE 5
     Route: 048
     Dates: start: 20210713, end: 20210802
  13. LENALIDOMIDE [Suspect]
     Active Substance: LENALIDOMIDE
     Dosage: CYCLE 6
     Route: 048
     Dates: start: 20210810, end: 20210830
  14. LENALIDOMIDE [Suspect]
     Active Substance: LENALIDOMIDE
     Dosage: CYCLE 7
     Route: 048
     Dates: start: 20210907, end: 20210927
  15. LENALIDOMIDE [Suspect]
     Active Substance: LENALIDOMIDE
     Dosage: CYCLE 8
     Route: 048
     Dates: start: 20211005, end: 20211025
  16. LENALIDOMIDE [Suspect]
     Active Substance: LENALIDOMIDE
     Dosage: CYCLE 9
     Route: 048
     Dates: start: 20211102, end: 20211122
  17. CYCLOPHOSPHAMIDE\DOXORUBICIN\PREDNISONE\VINCRISTINE [Suspect]
     Active Substance: CYCLOPHOSPHAMIDE\DOXORUBICIN\PREDNISONE\VINCRISTINE
     Dosage: UNKNOWN
     Route: 065
     Dates: start: 20230707
  18. OMEPRAZOLE [Concomitant]
     Active Substance: OMEPRAZOLE
     Indication: Prophylaxis
     Dosage: 20 MILLIGRAM, PRN
     Route: 048
     Dates: start: 20210316
  19. ZOLPIDEM [Concomitant]
     Active Substance: ZOLPIDEM TARTRATE
     Dosage: 5 MILLIGRAM, PRN
     Route: 048
     Dates: start: 20220222

REACTIONS (1)
  - Progressive multifocal leukoencephalopathy [Fatal]

NARRATIVE: CASE EVENT DATE: 20231019
